FAERS Safety Report 20494109 (Version 3)
Quarter: 2022Q2

REPORT INFORMATION
  Report Type: Spontaneous
  Country: GB (occurrence: GB)
  Receive Date: 20220221
  Receipt Date: 20220511
  Transmission Date: 20220721
  Serious: Yes (Other)
  Sender: FDA-Public Use
  Company Number: GB-CELLTRION INC.-2022GB001773

PATIENT

DRUGS (1)
  1. INFLIXIMAB [Suspect]
     Active Substance: INFLIXIMAB
     Indication: Crohn^s disease
     Dosage: 120 MILLIGRAM, Q2WEEKS, PREFILLED PEN
     Route: 058

REACTIONS (7)
  - Meningitis viral [Unknown]
  - COVID-19 [Unknown]
  - Injection site pain [Unknown]
  - Skin laceration [Unknown]
  - Intentional dose omission [Unknown]
  - Treatment delayed [Unknown]
  - Product temperature excursion issue [Unknown]
